FAERS Safety Report 11107429 (Version 1)
Quarter: 2015Q2

REPORT INFORMATION
  Report Type: Spontaneous
  Country: FR (occurrence: FR)
  Receive Date: 20150512
  Receipt Date: 20150512
  Transmission Date: 20150821
  Serious: Yes (Hospitalization, Other)
  Sender: FDA-Public Use
  Company Number: FR-ASTRAZENECA-2015SE42763

PATIENT
  Age: 668 Month
  Sex: Male

DRUGS (13)
  1. TIOPHENICOL [Concomitant]
  2. LEVETIRACETAM. [Suspect]
     Active Substance: LEVETIRACETAM
     Dosage: 500 MG TWO TIMES A DAY, MYLAN PHARMA
     Route: 065
     Dates: start: 20150105, end: 20150302
  3. METHYLPREDNISOLONE. [Concomitant]
     Active Substance: METHYLPREDNISOLONE
  4. RIVOTRIL [Concomitant]
     Active Substance: CLONAZEPAM
  5. MEROPENEM. [Suspect]
     Active Substance: MEROPENEM
     Dosage: 2 G THREE TIMES A DAY (NON AZ PRODUCT)
     Route: 065
     Dates: start: 20150113
  6. ONDANSETRON [Concomitant]
     Active Substance: ONDANSETRON
  7. LOVENOX [Concomitant]
     Active Substance: ENOXAPARIN SODIUM
  8. AMOXICILLINE [Concomitant]
     Active Substance: AMOXICILLIN
  9. LOXEN [Concomitant]
     Active Substance: NICARDIPINE HYDROCHLORIDE
  10. SIMVASTATINE [Concomitant]
     Active Substance: SIMVASTATIN
  11. INEXIUM [Suspect]
     Active Substance: ESOMEPRAZOLE
     Route: 048
     Dates: start: 20150105, end: 20150302
  12. ACUPAN [Concomitant]
     Active Substance: NEFOPAM HYDROCHLORIDE
  13. ZAMUDOL [Concomitant]
     Active Substance: TRAMADOL HYDROCHLORIDE

REACTIONS (7)
  - Subarachnoid haemorrhage [Unknown]
  - Speech disorder [Unknown]
  - Confusional state [Unknown]
  - Disturbance in attention [Recovering/Resolving]
  - General physical health deterioration [Unknown]
  - Pain [Unknown]
  - Encephalopathy [Recovering/Resolving]

NARRATIVE: CASE EVENT DATE: 20150105
